FAERS Safety Report 15403781 (Version 3)
Quarter: 2019Q2

REPORT INFORMATION
  Report Type: Spontaneous
  Country: US (occurrence: US)
  Receive Date: 20180919
  Receipt Date: 20190404
  Transmission Date: 20190711
  Serious: Yes (Hospitalization, Other)
  Sender: FDA-Public Use
  Company Number: US-BAYER-2017-151794

PATIENT
  Sex: Female
  Weight: 68.03 kg

DRUGS (3)
  1. MIRENA [Suspect]
     Active Substance: LEVONORGESTREL
     Dosage: UNK
  2. ESSURE [Suspect]
     Active Substance: DEVICE
     Dosage: UNK
     Dates: start: 200812, end: 20131213
  3. MIRENA [Suspect]
     Active Substance: LEVONORGESTREL
     Dosage: 20 MCG/24HR, CONT
     Route: 015

REACTIONS (20)
  - Myalgia [Not Recovered/Not Resolved]
  - Abdominal pain lower [None]
  - Device expulsion [Unknown]
  - Tension headache [Not Recovered/Not Resolved]
  - Dysmenorrhoea [Not Recovered/Not Resolved]
  - Abdominal discomfort [Not Recovered/Not Resolved]
  - Weight increased [Not Recovered/Not Resolved]
  - Abdominal pain [Not Recovered/Not Resolved]
  - Fallopian tube perforation [Unknown]
  - Uterine perforation [None]
  - Abdominal pain lower [Not Recovered/Not Resolved]
  - Pain in extremity [Not Recovered/Not Resolved]
  - Back pain [Not Recovered/Not Resolved]
  - Abdominal mass [Unknown]
  - Limb mass [Unknown]
  - Migraine [Not Recovered/Not Resolved]
  - Limb discomfort [Not Recovered/Not Resolved]
  - Arthralgia [Not Recovered/Not Resolved]
  - Device dislocation [Unknown]
  - Pelvic pain [Unknown]

NARRATIVE: CASE EVENT DATE: 2013
